FAERS Safety Report 5878575-5 (Version None)
Quarter: 2008Q3

REPORT INFORMATION
  Report Type: 
  Country: None (occurrence: None)
  Receive Date: 20080909
  Receipt Date: 20080828
  Transmission Date: 20090109
  Serious: Yes (Hospitalization, Disabling, Other)
  Sender: FDA-Public Use
  Company Number: PAR_02329_2008

PATIENT
  Sex: Female

DRUGS (7)
  1. IBUPROFEN [Suspect]
     Indication: PAIN
     Dosage: (DF)
  2. RIVAROXABAN 20 MG OR WARFARIN (1, 2.5, OR 5 MG) [Suspect]
     Indication: CEREBROVASCULAR ACCIDENT
     Dosage: (1 DF QD ORAL)
     Route: 048
     Dates: start: 20080507, end: 20080801
  3. RIVAROXABAN 20 MG OR WARFARIN (1, 2.5, OR 5 MG) [Suspect]
     Indication: EMBOLISM
     Dosage: (1 DF QD ORAL)
     Route: 048
     Dates: start: 20080507, end: 20080801
  4. RIVAROXABAN 20 MG OR WARFARIN (1, 2.5, OR 5 MG) [Suspect]
     Indication: PROPHYLAXIS
     Dosage: (1 DF QD ORAL)
     Route: 048
     Dates: start: 20080507, end: 20080801
  5. RIVAROXABAN 20 MG OR WARFARIN (1, 2.5, OR 5 MG) [Suspect]
     Indication: CEREBROVASCULAR ACCIDENT
     Dosage: (1 DF QD ORAL)
     Route: 048
     Dates: start: 20080801
  6. RIVAROXABAN 20 MG OR WARFARIN (1, 2.5, OR 5 MG) [Suspect]
     Indication: EMBOLISM
     Dosage: (1 DF QD ORAL)
     Route: 048
     Dates: start: 20080801
  7. RIVAROXABAN 20 MG OR WARFARIN (1, 2.5, OR 5 MG) [Suspect]
     Indication: PROPHYLAXIS
     Dosage: (1 DF QD ORAL)
     Route: 048
     Dates: start: 20080801

REACTIONS (6)
  - FLOATING PATELLA [None]
  - HAEMARTHROSIS [None]
  - KNEE DEFORMITY [None]
  - LEUKOCYTOSIS [None]
  - MEDICATION ERROR [None]
  - RED BLOOD CELL COUNT DECREASED [None]
